FAERS Safety Report 14108622 (Version 1)
Quarter: 2017Q4

REPORT INFORMATION
  Report Type: Spontaneous
  Country: GB (occurrence: GB)
  Receive Date: 20171019
  Receipt Date: 20171019
  Transmission Date: 20180321
  Serious: Yes (Disabling)
  Sender: FDA-Public Use
  Company Number: GB-ALLERGAN-1759325US

PATIENT
  Age: 66 Year
  Sex: Male
  Weight: 66.22 kg

DRUGS (2)
  1. MADOPAR [Concomitant]
     Active Substance: BENSERAZIDE HYDROCHLORIDE\LEVODOPA
     Dosage: UNK
  2. MEMANTINE HCL - BP [Suspect]
     Active Substance: MEMANTINE
     Indication: AMNESIA
     Dosage: 10 MG, UNK
     Route: 048
     Dates: start: 20170202, end: 20170908

REACTIONS (6)
  - Swelling face [Unknown]
  - Mixed incontinence [Not Recovered/Not Resolved]
  - Mental impairment [Unknown]
  - Peripheral swelling [Unknown]
  - Joint swelling [Unknown]
  - Confusional state [Not Recovered/Not Resolved]

NARRATIVE: CASE EVENT DATE: 20170202
